FAERS Safety Report 4422759-X (Version None)
Quarter: 2004Q3

REPORT INFORMATION
  Report Type: 
  Country: None (occurrence: None)
  Receive Date: 20040713
  Receipt Date: 20030819
  Transmission Date: 20050211
  Serious: No
  Sender: FDA-Public Use
  Company Number: PHEH2003US07567

PATIENT
  Age: 55 Year
  Sex: Male

DRUGS (1)
  1. ELIDEL [Suspect]
     Dosage: TOPICAL
     Route: 061
     Dates: start: 20030818, end: 20030819

REACTIONS (1)
  - EYE IRRITATION [None]
